FAERS Safety Report 6708034-9 (Version None)
Quarter: 2010Q2

REPORT INFORMATION
  Report Type: 
  Country: None (occurrence: None)
  Receive Date: 20100503
  Receipt Date: 20090203
  Transmission Date: 20101027
  Serious: Yes (Other)
  Sender: FDA-Public Use
  Company Number: US-BAYER-200912642NA

PATIENT
  Age: 42 Year
  Sex: Female

DRUGS (2)
  1. BETASERON [Suspect]
     Indication: SECONDARY PROGRESSIVE MULTIPLE SCLEROSIS
     Dosage: TOTAL DAILY DOSE: 8 MIU
     Route: 058
     Dates: start: 20080721
  2. ANTIBIOTICS [Concomitant]
     Indication: URINARY TRACT INFECTION

REACTIONS (3)
  - DYSKINESIA [None]
  - MOBILITY DECREASED [None]
  - NIGHT SWEATS [None]
